FAERS Safety Report 5800460-5 (Version None)
Quarter: 2008Q3

REPORT INFORMATION
  Report Type: 
  Country: None (occurrence: None)
  Receive Date: 20080703
  Receipt Date: 20080626
  Transmission Date: 20090109
  Serious: Yes (Other)
  Sender: FDA-Public Use
  Company Number: A0682720A

PATIENT
  Age: 19 Year
  Sex: Female

DRUGS (2)
  1. PARNATE [Suspect]
     Indication: MAJOR DEPRESSION
     Dosage: 30MG TWICE PER DAY
     Route: 048
     Dates: start: 20070831
  2. KLONOPIN [Concomitant]

REACTIONS (5)
  - FEELING COLD [None]
  - HYPOMANIA [None]
  - INSOMNIA [None]
  - MALAISE [None]
  - SUICIDAL IDEATION [None]
